FAERS Safety Report 6547521-3 (Version None)
Quarter: 2010Q1

REPORT INFORMATION
  Report Type: 
  Country: None (occurrence: None)
  Receive Date: 20100122
  Receipt Date: 20100111
  Transmission Date: 20100710
  Serious: Yes (Hospitalization, Other)
  Sender: FDA-Public Use
  Company Number: US-JNJFOC-20100104834

PATIENT
  Sex: Male

DRUGS (14)
  1. RISPERIDONE [Suspect]
     Indication: MENTAL DISORDER
     Route: 065
  2. VALPROATE SODIUM [Suspect]
     Indication: DRUG THERAPY
     Route: 065
  3. VALPROATE SODIUM [Suspect]
     Indication: EPILEPSY
     Route: 065
  4. CLOZAPINE [Suspect]
     Indication: MENTAL DISORDER
     Route: 065
  5. OLANZAPINE [Suspect]
     Indication: MENTAL DISORDER
     Route: 065
  6. LITHIUM [Suspect]
     Indication: MENTAL DISORDER
     Route: 065
  7. CITALOPRAM HYDROBROMIDE [Suspect]
     Indication: MENTAL DISORDER
     Route: 065
  8. GABAPENTIN [Suspect]
     Indication: MENTAL DISORDER
     Route: 065
  9. GABAPENTIN [Suspect]
     Route: 065
  10. GABAPENTIN [Suspect]
     Route: 065
  11. OXCARBAZEPINE [Suspect]
     Indication: MENTAL DISORDER
     Route: 065
  12. OXCARBAZEPINE [Suspect]
     Route: 065
  13. OXCARBAZEPINE [Suspect]
     Route: 065
  14. LAMOTRIGINE [Suspect]
     Indication: DRUG USE FOR UNKNOWN INDICATION
     Route: 065

REACTIONS (2)
  - CONVULSION [None]
  - MYOCLONUS [None]
